FAERS Safety Report 6388379-5 (Version None)
Quarter: 2009Q4

REPORT INFORMATION
  Report Type: 
  Country: None (occurrence: None)
  Receive Date: 20091001
  Receipt Date: 20091001
  Transmission Date: 20100525
  Serious: Yes (Hospitalization)
  Sender: FDA-Public Use
  Company Number: None

PATIENT
  Age: 68 Year
  Sex: Male
  Weight: 84.2 kg

DRUGS (7)
  1. ZD6474 (VANDETANIB) [Suspect]
     Indication: GLIOBLASTOMA
     Dosage: 100MG PO QD
     Dates: start: 20080620, end: 20090726
  2. TEMOZOLOMIDE [Suspect]
     Indication: GLIOBLASTOMA
     Dosage: 75MG/M2 PO QD
     Route: 048
     Dates: start: 20080912, end: 20090720
  3. LIPITOR [Concomitant]
  4. LEVOTHYROXINE [Concomitant]
  5. PEPCID [Concomitant]
  6. DEXAMETHASONE 0.5MG TAB [Concomitant]
  7. METOCLOPRAMIDE [Concomitant]

REACTIONS (1)
  - PULMONARY EMBOLISM [None]
